FAERS Safety Report 25910387 (Version 3)
Quarter: 2025Q4

REPORT INFORMATION
  Report Type: Report from Study
  Country: US (occurrence: US)
  Receive Date: 20251012
  Receipt Date: 20251029
  Transmission Date: 20260118
  Serious: No
  Sender: ABBVIE
  Company Number: US-ABBVIE-6491756

PATIENT
  Age: 78 Year
  Sex: Male

DRUGS (19)
  1. VYALEV [Suspect]
     Active Substance: FOSCARBIDOPA\FOSLEVODOPA
     Indication: Parkinson^s disease
     Route: 058
     Dates: start: 20250930, end: 20251003
  2. PRAMIPEXOLE ?DIHYDROCHLORI [Concomitant]
     Indication: Product used for unknown indication
  3. POTASSIUM ?CHLORIDE [Concomitant]
     Indication: Product used for unknown indication
  4. BETAMETHASONE ?VALERATE [Concomitant]
     Indication: Product used for unknown indication
  5. MIRALAX [Concomitant]
     Active Substance: POLYETHYLENE GLYCOL 3350
     Indication: Product used for unknown indication
  6. ONDANSETRON ?HCL [Concomitant]
     Indication: Product used for unknown indication
  7. CALMOSEPTINE [Concomitant]
     Active Substance: MENTHOL\ZINC OXIDE
     Indication: Product used for unknown indication
  8. METOPROLOL ?TARTRATE [Concomitant]
     Indication: Product used for unknown indication
  9. LANSOPRAZOLE [Concomitant]
     Active Substance: LANSOPRAZOLE
     Indication: Product used for unknown indication
  10. FINASTERIDE [Concomitant]
     Active Substance: FINASTERIDE
     Indication: Product used for unknown indication
  11. FAMOTIDINE [Concomitant]
     Active Substance: FAMOTIDINE
     Indication: Product used for unknown indication
  12. VITAMIN B12 [Concomitant]
     Active Substance: CYANOCOBALAMIN
     Indication: Product used for unknown indication
  13. LOTRISONE [Concomitant]
     Active Substance: BETAMETHASONE DIPROPIONATE\CLOTRIMAZOLE
     Indication: Product used for unknown indication
  14. CLOPIDOGREL [Concomitant]
     Active Substance: CLOPIDOGREL BISULFATE
     Indication: Product used for unknown indication
  15. SINEMET [Concomitant]
     Active Substance: CARBIDOPA\LEVODOPA
     Indication: Product used for unknown indication
  16. OSMOLITE [Concomitant]
     Indication: Product used for unknown indication
  17. ROSUVASTATIN CALCIUM [Concomitant]
     Active Substance: ROSUVASTATIN CALCIUM
     Indication: Product used for unknown indication
  18. GEMTESA [Concomitant]
     Active Substance: VIBEGRON
     Indication: Product used for unknown indication
  19. FOLIC ACID [Concomitant]
     Active Substance: FOLIC ACID
     Indication: Product used for unknown indication

REACTIONS (15)
  - Localised infection [Recovered/Resolved]
  - Balance disorder [Unknown]
  - Infusion site pain [Not Recovered/Not Resolved]
  - Infusion site induration [Recovered/Resolved]
  - Asthenia [Unknown]
  - Infusion site infection [Not Recovered/Not Resolved]
  - Malaise [Unknown]
  - Insomnia [Recovering/Resolving]
  - Infusion site induration [Unknown]
  - Infusion site abscess [Unknown]
  - Hallucination [Recovered/Resolved]
  - Sleep talking [Recovered/Resolved]
  - Dysphagia [Recovering/Resolving]
  - Tremor [Not Recovered/Not Resolved]
  - Headache [Recovering/Resolving]

NARRATIVE: CASE EVENT DATE: 20250101
